FAERS Safety Report 20233891 (Version 1)
Quarter: 2021Q4

REPORT INFORMATION
  Report Type: Spontaneous
  Country: CA (occurrence: CA)
  Receive Date: 20211227
  Receipt Date: 20211227
  Transmission Date: 20220303
  Serious: Yes (Other)
  Sender: FDA-Public Use
  Company Number: CA-SA-SAC20211223000180

PATIENT
  Age: 60 Year
  Sex: Female

DRUGS (13)
  1. LEFLUNOMIDE [Suspect]
     Active Substance: LEFLUNOMIDE
     Dosage: UNK
  2. METHOTREXATE [Suspect]
     Active Substance: METHOTREXATE
  3. ROSUVASTATIN [Suspect]
     Active Substance: ROSUVASTATIN
     Dosage: UNK
  4. HUMIRA [Suspect]
     Active Substance: ADALIMUMAB
     Indication: Psoriatic arthropathy
  5. METOPROLOL [Suspect]
     Active Substance: METOPROLOL
  6. VITAMIN D3 [Suspect]
     Active Substance: CHOLECALCIFEROL
     Dosage: UNK
  7. ENBREL [Concomitant]
     Active Substance: ETANERCEPT
     Indication: Psoriatic arthropathy
     Dosage: UNK
  8. HYDROXYCHLOROQUINE [Concomitant]
     Active Substance: HYDROXYCHLOROQUINE
  9. NAPROXEN [Concomitant]
     Active Substance: NAPROXEN
  10. SULFASALAZINE [Concomitant]
     Active Substance: SULFASALAZINE
  11. VENLAFAXINE [Concomitant]
     Active Substance: VENLAFAXINE HYDROCHLORIDE
  12. VITAMIN B12 [Concomitant]
     Active Substance: CYANOCOBALAMIN
     Dosage: UNK
  13. VITAMIN K [Concomitant]
     Active Substance: PHYTONADIONE

REACTIONS (8)
  - Arthralgia [Unknown]
  - Epicondylitis [Unknown]
  - Feeling abnormal [Unknown]
  - Joint swelling [Unknown]
  - Mouth ulceration [Unknown]
  - Psoriatic arthropathy [Unknown]
  - Alopecia [Unknown]
  - Rash [Unknown]
